FAERS Safety Report 22755389 (Version 7)
Quarter: 2025Q3

REPORT INFORMATION
  Report Type: Spontaneous
  Country: JP (occurrence: JP)
  Receive Date: 20230727
  Receipt Date: 20250908
  Transmission Date: 20251020
  Serious: Yes (Hospitalization, Other)
  Sender: BRISTOL-MYERS SQUIBB COMPANY
  Company Number: JP-BRISTOL-MYERS SQUIBB COMPANY-2023-103524

PATIENT
  Age: 47 Year
  Sex: Female
  Weight: 50.8 kg

DRUGS (16)
  1. YERVOY [Suspect]
     Active Substance: IPILIMUMAB
     Indication: Malignant melanoma
     Dates: start: 20230307, end: 20230328
  2. YERVOY [Suspect]
     Active Substance: IPILIMUMAB
  3. OPDIVO [Suspect]
     Active Substance: NIVOLUMAB
     Indication: Malignant melanoma
     Dates: start: 20230307, end: 20230328
  4. OPDIVO [Suspect]
     Active Substance: NIVOLUMAB
  5. BRAFTOVI [Suspect]
     Active Substance: ENCORAFENIB
     Indication: Malignant melanoma
     Dates: start: 20230414, end: 20230417
  6. BRAFTOVI [Suspect]
     Active Substance: ENCORAFENIB
     Dates: start: 20230425
  7. MEKTOVI [Suspect]
     Active Substance: BINIMETINIB
     Indication: Malignant melanoma
     Dates: start: 20230414, end: 20230417
  8. MEKTOVI [Suspect]
     Active Substance: BINIMETINIB
     Dates: start: 20230425
  9. BILASTINE [Concomitant]
     Active Substance: BILASTINE
     Indication: Malignant melanoma
     Dates: start: 20230314
  10. LOXOPROFEN [Concomitant]
     Active Substance: LOXOPROFEN
     Indication: Malignant melanoma
     Dates: start: 20230206
  11. REBAMIPIDE [Concomitant]
     Active Substance: REBAMIPIDE
     Indication: Malignant melanoma
     Dates: start: 20230206
  12. CALCIUM CARBONATE\CHOLECALCIFEROL\MAGNESIUM CARBONATE [Concomitant]
     Active Substance: CALCIUM CARBONATE\CHOLECALCIFEROL\MAGNESIUM CARBONATE
     Indication: Malignant melanoma
     Dates: start: 20230410
  13. TRAMCET [Concomitant]
     Active Substance: ACETAMINOPHEN\TRAMADOL
     Indication: Malignant melanoma
     Dates: start: 20230410
  14. HYDROMORPHONE HYDROCHLORIDE [Concomitant]
     Active Substance: HYDROMORPHONE HYDROCHLORIDE
     Indication: Malignant melanoma
     Dates: start: 20230413
  15. HYDROMORPHONE HYDROCHLORIDE [Concomitant]
     Active Substance: HYDROMORPHONE HYDROCHLORIDE
     Indication: Malignant melanoma
  16. HYDROMORPHONE HYDROCHLORIDE [Concomitant]
     Active Substance: HYDROMORPHONE HYDROCHLORIDE
     Indication: Pain

REACTIONS (3)
  - Immune-mediated lung disease [Recovering/Resolving]
  - Tumour lysis syndrome [Recovered/Resolved]
  - Nausea [Recovered/Resolved]

NARRATIVE: CASE EVENT DATE: 20230417
